FAERS Safety Report 6623358-1 (Version None)
Quarter: 2010Q1

REPORT INFORMATION
  Report Type: 
  Country: None (occurrence: None)
  Receive Date: 20100310
  Receipt Date: 20091130
  Transmission Date: 20100710
  Serious: No
  Sender: FDA-Public Use
  Company Number: US-BIOGENIDEC-2009BI039183

PATIENT
  Age: 38 Year
  Sex: Male

DRUGS (1)
  1. AVONEX [Suspect]
     Indication: MULTIPLE SCLEROSIS
     Route: 030
     Dates: start: 20090825

REACTIONS (6)
  - CHILLS [None]
  - CLUMSINESS [None]
  - FATIGUE [None]
  - HANGOVER [None]
  - HEADACHE [None]
  - INSOMNIA [None]
